FAERS Safety Report 25425056 (Version 1)
Quarter: 2025Q2

REPORT INFORMATION
  Report Type: Report from Study
  Country: AR (occurrence: AR)
  Receive Date: 20250611
  Receipt Date: 20250611
  Transmission Date: 20250717
  Serious: Yes (Hospitalization)
  Sender: BOEHRINGER INGELHEIM
  Company Number: AR-BoehringerIngelheim-2025-BI-074818

PATIENT
  Age: 54 Year
  Sex: Female

DRUGS (1)
  1. OFEV [Suspect]
     Active Substance: NINTEDANIB
     Indication: Interstitial lung disease
     Dosage: 150 MG TWICE A DAY
     Dates: start: 20221109, end: 20250415

REACTIONS (1)
  - Colitis [Recovered/Resolved]

NARRATIVE: CASE EVENT DATE: 20221109
